FAERS Safety Report 23229405 (Version 2)
Quarter: 2023Q4

REPORT INFORMATION
  Report Type: Spontaneous
  Country: US (occurrence: None)
  Receive Date: 20231127
  Receipt Date: 20231130
  Transmission Date: 20240110
  Serious: Yes (Death, Hospitalization)
  Sender: FDA-Public Use
  Company Number: US-ROCHE-3462021

PATIENT
  Age: 80 Year
  Sex: Male
  Weight: 86.26 kg

DRUGS (3)
  1. RITUXAN [Suspect]
     Active Substance: RITUXIMAB
     Indication: Immune thrombocytopenia
     Route: 041
     Dates: start: 20230914, end: 20230928
  2. LASIX [Concomitant]
     Active Substance: FUROSEMIDE
  3. PREDNISONE [Concomitant]
     Active Substance: PREDNISONE

REACTIONS (18)
  - Pneumonia aspiration [Fatal]
  - Dysphagia [Fatal]
  - Interstitial lung disease [Fatal]
  - Renal failure [Unknown]
  - Blood calcium increased [Unknown]
  - Pneumocystis jirovecii pneumonia [Unknown]
  - Immunosuppression [Unknown]
  - Peripheral swelling [Recovered/Resolved]
  - Erythema [Recovered/Resolved]
  - Fatigue [Unknown]
  - Confusional state [Unknown]
  - Asthenia [Unknown]
  - Dry skin [Recovered/Resolved]
  - Gait disturbance [Unknown]
  - Tremor [Unknown]
  - Oral mucosal blistering [Unknown]
  - Off label use [Unknown]
  - Muscle spasms [Unknown]

NARRATIVE: CASE EVENT DATE: 20230914
